FAERS Safety Report 11288817 (Version 1)
Quarter: 2015Q3

REPORT INFORMATION
  Report Type: Spontaneous
  Country: US (occurrence: US)
  Receive Date: 20150721
  Receipt Date: 20150721
  Transmission Date: 20151125
  Serious: No
  Sender: FDA-Public Use
  Company Number: US-UNITED THERAPEUTICS-UNT-2014-012453

PATIENT
  Sex: Female
  Weight: 117.1 kg

DRUGS (2)
  1. ASPIRIN EC [Concomitant]
     Active Substance: ASPIRIN
     Indication: PRODUCT USED FOR UNKNOWN INDICATION
  2. REMODULIN [Suspect]
     Active Substance: TREPROSTINIL
     Indication: PULMONARY ARTERIAL HYPERTENSION
     Dosage: 0.028 ?G/KG/MIN, CONTINUING
     Route: 058
     Dates: start: 20140320

REACTIONS (4)
  - Infusion site pain [Recovered/Resolved]
  - Infusion site erythema [Recovered/Resolved]
  - Infusion site infection [Recovered/Resolved]
  - Infusion site pustule [Recovered/Resolved]

NARRATIVE: CASE EVENT DATE: 2014
